FAERS Safety Report 5500089-2 (Version None)
Quarter: 2007Q4

REPORT INFORMATION
  Report Type: 
  Country: None (occurrence: None)
  Receive Date: 20071024
  Receipt Date: 20071009
  Transmission Date: 20080405
  Serious: Yes (Hospitalization)
  Sender: FDA-Public Use
  Company Number: A-CH2007-18148

PATIENT

DRUGS (1)
  1. TRACLEER [Suspect]
     Indication: SKIN ULCER
     Dosage: 125 MG, BID, ORAL; 62.5 MG, BID, ORAL
     Route: 048

REACTIONS (4)
  - BILIARY CIRRHOSIS PRIMARY [None]
  - CHOLESTASIS [None]
  - CYTOLYTIC HEPATITIS [None]
  - GENERAL PHYSICAL HEALTH DETERIORATION [None]
